FAERS Safety Report 6295847-3 (Version None)
Quarter: 2009Q3

REPORT INFORMATION
  Report Type: 
  Country: None (occurrence: None)
  Receive Date: 20090804
  Receipt Date: 20090730
  Transmission Date: 20100115
  Serious: Yes (Hospitalization)
  Sender: FDA-Public Use
  Company Number: SE-ROCHE-634432

PATIENT
  Age: 50 Year
  Sex: Male

DRUGS (8)
  1. CYMEVENE [Suspect]
     Indication: CYTOMEGALOVIRUS GASTROINTESTINAL INFECTION
     Route: 042
  2. CYMEVENE [Suspect]
     Dosage: SINGLE DOSE OF 400 MG WAS GIVEN
     Route: 042
     Dates: start: 20090509, end: 20090509
  3. VALCYTE [Suspect]
     Indication: CYTOMEGALOVIRUS GASTROINTESTINAL INFECTION
     Route: 048
     Dates: start: 20090427, end: 20090430
  4. URSO FALK [Concomitant]
  5. SANDIMMUNE [Concomitant]
  6. BACTRIM [Concomitant]
  7. MYCOSTATIN ORAL SUSPENSION [Concomitant]
     Route: 048
  8. EMGESAN [Concomitant]

REACTIONS (1)
  - PERICARDITIS [None]
